FAERS Safety Report 10362116 (Version 2)
Quarter: 2014Q3

REPORT INFORMATION
  Report Type: Spontaneous
  Country: US (occurrence: US)
  Receive Date: 20140805
  Receipt Date: 20140805
  Transmission Date: 20150326
  Serious: No
  Sender: FDA-Public Use
  Company Number: US-AMGEN-USASP2014053977

PATIENT
  Age: 64 Year
  Sex: Female
  Weight: 79.37 kg

DRUGS (11)
  1. PROSEC [Concomitant]
     Dosage: 20 MG, QD
  2. FOLIC ACID. [Concomitant]
     Active Substance: FOLIC ACID
     Dosage: 1 MG, UNK
     Route: 048
  3. HCTZ [Concomitant]
     Active Substance: HYDROCHLOROTHIAZIDE
     Dosage: 25 MG, QD
     Route: 048
  4. OMEPRAZOLE. [Concomitant]
     Active Substance: OMEPRAZOLE
     Dosage: 40 MG, UNK
     Route: 048
  5. THYROX [Concomitant]
     Dosage: 30 MG, BID
  6. PLAQUENIL [Concomitant]
     Active Substance: HYDROXYCHLOROQUINE SULFATE
     Dosage: 200 MG, BID
     Route: 048
  7. CELEBREX [Concomitant]
     Active Substance: CELECOXIB
     Dosage: 200 MG, UNK
     Route: 048
  8. ENBREL [Suspect]
     Active Substance: ETANERCEPT
     Indication: RHEUMATOID ARTHRITIS
     Dosage: 50 MG, QWK
     Route: 058
     Dates: end: 20140714
  9. LOSARTAN [Concomitant]
     Active Substance: LOSARTAN
     Dosage: 100 MG, QD
     Route: 048
  10. METHOTREXATE (METHOTREXATE SODIUM) [Concomitant]
     Active Substance: METHOTREXATE SODIUM
     Dosage: 15 MG, QWK
     Route: 058
  11. TOPROL XL [Concomitant]
     Active Substance: METOPROLOL SUCCINATE
     Dosage: 50 MG, BID

REACTIONS (2)
  - Injection site reaction [Recovered/Resolved]
  - Urticaria [Recovered/Resolved]

NARRATIVE: CASE EVENT DATE: 201407
